FAERS Safety Report 8809651 (Version 2)
Quarter: 2013Q2

REPORT INFORMATION
  Report Type: Report from Study
  Country: BR (occurrence: BR)
  Receive Date: 20120926
  Receipt Date: 20130508
  Transmission Date: 20140414
  Serious: Yes (Death, Hospitalization)
  Sender: FDA-Public Use
  Company Number: BR-ABBOTT-12P-020-0983345-00

PATIENT
  Age: 67 Year
  Sex: Male
  Weight: 90 kg

DRUGS (5)
  1. HUMIRA [Suspect]
     Indication: RHEUMATOID ARTHRITIS
     Route: 058
     Dates: start: 20100528, end: 201111
  2. PREDNISOLONE + ALLOPURINOL [Concomitant]
     Indication: ARTHRITIS
     Dosage: 2.5 MG + 150 MG
     Route: 048
     Dates: start: 2002
  3. PROPAFENONE HYDROCHLORIDE [Concomitant]
     Indication: ATRIAL FIBRILLATION
     Route: 048
     Dates: start: 2000
  4. ATENOLOL [Concomitant]
     Indication: HYPERTENSION
     Route: 048
     Dates: start: 2000
  5. PURAN T4 [Concomitant]
     Indication: HYPOTHYROIDISM
     Route: 048
     Dates: start: 2000

REACTIONS (5)
  - Death [Fatal]
  - Pulmonary congestion [Not Recovered/Not Resolved]
  - Acetabulum fracture [Recovering/Resolving]
  - Decubitus ulcer [Recovering/Resolving]
  - Erysipelas [Recovered/Resolved]
